FAERS Safety Report 7770366-3 (Version None)
Quarter: 2011Q3

REPORT INFORMATION
  Report Type: 
  Country: None (occurrence: None)
  Receive Date: 20110922
  Receipt Date: 20110217
  Transmission Date: 20111222
  Serious: No
  Sender: FDA-Public Use
  Company Number: US-ASTRAZENECA-2011SE09300

PATIENT
  Age: 62 Year
  Sex: Female
  Weight: 107 kg

DRUGS (3)
  1. SEROQUEL [Suspect]
     Indication: SLEEP DISORDER
     Route: 048
  2. VITAMIN E [Concomitant]
  3. THYROID REPLACEMENT [Concomitant]

REACTIONS (2)
  - IMPULSIVE BEHAVIOUR [None]
  - DYSPHAGIA [None]
